FAERS Safety Report 7576213-7 (Version None)
Quarter: 2011Q2

REPORT INFORMATION
  Report Type: 
  Country: None (occurrence: None)
  Receive Date: 20110628
  Receipt Date: 20091130
  Transmission Date: 20111010
  Serious: Yes (Other)
  Sender: FDA-Public Use
  Company Number: US-BAYER-200940984NA

PATIENT
  Age: 73 Year
  Sex: Male
  Weight: 88 kg

DRUGS (10)
  1. HEPARIN [Concomitant]
     Dosage: 15K/U
     Route: 042
     Dates: start: 20041223, end: 20041223
  2. PHENYLEPHRINE HCL [Concomitant]
     Dosage: .25 MG, UNK
     Route: 042
  3. TRASYLOL [Suspect]
     Indication: CORONARY ARTERY BYPASS
     Dosage: 1 ML TEST DOSE, 200 ML BOULS, 50 ML/HR INFUSION
     Route: 042
     Dates: start: 20041224, end: 20041224
  4. LIPITOR [Concomitant]
     Dosage: 20 MG, UNK
     Route: 048
     Dates: start: 19940101
  5. PAPAVERINE [Concomitant]
     Dosage: 120 MG, UNK
     Route: 042
     Dates: start: 20041223, end: 20041223
  6. VANCOMYCIN [Concomitant]
     Dosage: 500 MG, UNK
     Route: 042
     Dates: start: 20041223, end: 20041223
  7. IMDUR [Concomitant]
     Dosage: UNK
     Route: 048
     Dates: start: 19940101
  8. BENADRYL [Concomitant]
     Dosage: 50 MG, UNK
     Route: 042
     Dates: start: 20041223, end: 20041223
  9. PROCARDIA [Concomitant]
     Dosage: 20 MG, UNK
     Route: 048
     Dates: start: 19940101
  10. LOPID [Concomitant]
     Dosage: UNK
     Route: 048
     Dates: start: 19940101

REACTIONS (11)
  - PAIN [None]
  - STRESS [None]
  - UNEVALUABLE EVENT [None]
  - FEAR [None]
  - RENAL IMPAIRMENT [None]
  - ANHEDONIA [None]
  - INJURY [None]
  - RENAL INJURY [None]
  - RENAL FAILURE [None]
  - ANXIETY [None]
  - EMOTIONAL DISTRESS [None]
